FAERS Safety Report 12809402 (Version 2)
Quarter: 2016Q4

REPORT INFORMATION
  Report Type: Spontaneous
  Country: IN (occurrence: IN)
  Receive Date: 20161005
  Receipt Date: 20161028
  Transmission Date: 20170207
  Serious: Yes (Other)
  Sender: FDA-Public Use
  Company Number: IN-BAUSCH-BL-2016-024062

PATIENT
  Age: 26 Year
  Sex: Male

DRUGS (2)
  1. CLOFAZIMINE [Suspect]
     Active Substance: CLOFAZIMINE
     Indication: VITILIGO
     Route: 048
     Dates: start: 2014
  2. METHOXSALEN. [Suspect]
     Active Substance: METHOXSALEN
     Indication: VITILIGO
     Route: 048
     Dates: start: 2014

REACTIONS (1)
  - Maculopathy [Recovering/Resolving]
